FAERS Safety Report 6644368-4 (Version None)
Quarter: 2010Q1

REPORT INFORMATION
  Report Type: 
  Country: None (occurrence: None)
  Receive Date: 20100322
  Receipt Date: 20100316
  Transmission Date: 20100710
  Serious: Yes (Death, Hospitalization)
  Sender: FDA-Public Use
  Company Number: GB-ROCHE-682966

PATIENT
  Sex: Female
  Weight: 67 kg

DRUGS (12)
  1. AVASTIN [Suspect]
     Indication: COLON CANCER
     Route: 042
     Dates: start: 20100113, end: 20100113
  2. OXALIPLATIN [Concomitant]
     Indication: COLON CANCER
     Route: 042
     Dates: start: 20100113, end: 20100113
  3. CAPECITABINE [Concomitant]
     Route: 048
     Dates: start: 20100113, end: 20100115
  4. PHENYTOIN [Concomitant]
     Route: 048
  5. ATENOLOL [Concomitant]
     Route: 048
  6. CLEXANE [Concomitant]
     Route: 058
  7. OMEPRAZOLE [Concomitant]
     Route: 048
  8. DEXAMETHASONE [Concomitant]
     Route: 048
  9. PARACETAMOL [Concomitant]
     Dosage: PRN
  10. ZOPICLONE [Concomitant]
     Dosage: PRN. NOCTE
  11. LOPERAMIDE [Concomitant]
     Dosage: PRN
  12. RESOURCE LIQUID [Concomitant]
     Dosage: REPORTED AS RESOURCE SHAKES 1 PO + DS
     Route: 048

REACTIONS (1)
  - HYPERTENSIVE ENCEPHALOPATHY [None]
